FAERS Safety Report 20199491 (Version 1)
Quarter: 2021Q4

REPORT INFORMATION
  Report Type: Spontaneous
  Country: US (occurrence: None)
  Receive Date: 20211217
  Receipt Date: 20211217
  Transmission Date: 20220303
  Serious: Yes (Hospitalization)
  Sender: FDA-Public Use
  Company Number: None

PATIENT
  Sex: Female

DRUGS (1)
  1. KISQALI [Suspect]
     Active Substance: RIBOCICLIB
     Indication: Illness
     Dosage: FREQUENCY : DAILY;?
     Route: 048
     Dates: start: 202110

REACTIONS (4)
  - Pleural effusion [None]
  - Dyspnoea [None]
  - Muscular weakness [None]
  - Mobility decreased [None]
